FAERS Safety Report 19324815 (Version 1)
Quarter: 2021Q2

REPORT INFORMATION
  Report Type: Spontaneous
  Country: FR (occurrence: FR)
  Receive Date: 20210528
  Receipt Date: 20210528
  Transmission Date: 20210717
  Serious: Yes (Hospitalization)
  Sender: FDA-Public Use
  Company Number: FR-TEVA-2021-FR-1915711

PATIENT
  Age: 92 Year
  Sex: Male
  Weight: 70.9 kg

DRUGS (9)
  1. AZITHROMYCINE [Suspect]
     Active Substance: AZITHROMYCIN
     Indication: COVID-19
     Dosage: 250 MILLIGRAM DAILY; 250 MG IN THE MORNING
     Route: 048
     Dates: start: 20210122, end: 20210211
  2. KENZEN [Concomitant]
     Active Substance: CANDESARTAN CILEXETIL
  3. XATRAL [Concomitant]
     Active Substance: ALFUZOSIN
  4. KARDEGIC [Concomitant]
     Active Substance: ASPIRIN DL-LYSINE
  5. LOVENOX [Concomitant]
     Active Substance: ENOXAPARIN SODIUM
  6. LAMICTAL [Suspect]
     Active Substance: LAMOTRIGINE
     Indication: EPILEPSY
     Dosage: 50MG 2 / D, UNIT DOSE: 100 MILLIGRAM
     Route: 048
     Dates: start: 20210118, end: 20210215
  7. FINASTERIDE. [Concomitant]
     Active Substance: FINASTERIDE
  8. PARACETAMOL [Concomitant]
     Active Substance: ACETAMINOPHEN
  9. CEFTRIAXONE. [Suspect]
     Active Substance: CEFTRIAXONE
     Indication: COVID-19
     Dosage: 1 GRAM DAILY; 1G IN THE MORNING
     Route: 042
     Dates: start: 20210122, end: 20210211

REACTIONS (1)
  - Pancytopenia [Recovered/Resolved]

NARRATIVE: CASE EVENT DATE: 20210203
